FAERS Safety Report 5455195-8 (Version None)
Quarter: 2007Q3

REPORT INFORMATION
  Report Type: 
  Country: None (occurrence: None)
  Receive Date: 20070918
  Receipt Date: 20070906
  Transmission Date: 20080115
  Serious: Yes (Hospitalization, Other)
  Sender: FDA-Public Use
  Company Number: BR-JNJFOC-20070901907

PATIENT
  Age: 10 Year
  Sex: Male

DRUGS (1)
  1. HALDOL [Suspect]
     Indication: ACCIDENTAL DRUG INTAKE BY CHILD
     Route: 048

REACTIONS (5)
  - ACCIDENTAL DRUG INTAKE BY CHILD [None]
  - CONFUSIONAL STATE [None]
  - EXTRAPYRAMIDAL DISORDER [None]
  - LETHARGY [None]
  - MOVEMENT DISORDER [None]
